FAERS Safety Report 20673017 (Version 1)
Quarter: 2022Q2

REPORT INFORMATION
  Report Type: Spontaneous
  Country: US (occurrence: None)
  Receive Date: 20220403
  Receipt Date: 20220403
  Transmission Date: 20220720
  Serious: Yes (Hospitalization)
  Sender: FDA-Public Use
  Company Number: None

PATIENT
  Age: 64 Year
  Sex: Male
  Weight: 103.87 kg

DRUGS (1)
  1. ATENOLOL [Suspect]
     Active Substance: ATENOLOL
     Indication: Hypertension
     Dosage: FREQUENCY : DAILY;?
     Route: 048
     Dates: start: 20220215, end: 20220309

REACTIONS (9)
  - Asthenia [None]
  - Nausea [None]
  - Dizziness [None]
  - Vomiting [None]
  - Bradycardia [None]
  - Hyperhidrosis [None]
  - Troponin increased [None]
  - Therapy cessation [None]
  - Presyncope [None]

NARRATIVE: CASE EVENT DATE: 20220309
